FAERS Safety Report 5728836-5 (Version None)
Quarter: 2008Q2

REPORT INFORMATION
  Report Type: 
  Country: None (occurrence: None)
  Receive Date: 20080506
  Receipt Date: 20080428
  Transmission Date: 20081010
  Serious: Yes (Other)
  Sender: FDA-Public Use
  Company Number: FR-ELI_LILLY_AND_COMPANY-FR200804000688

PATIENT
  Sex: Female
  Weight: 51 kg

DRUGS (2)
  1. FORTEO [Suspect]
     Indication: OSTEOPOROSIS
     Dosage: 20 UG, DAILY (1/D)
     Route: 058
     Dates: start: 20071029, end: 20080315
  2. BASDENE [Concomitant]
     Indication: HYPERTHYROIDISM
     Dosage: 2 D/F, DAILY (1/D)
     Route: 048
     Dates: start: 19800101

REACTIONS (1)
  - WEIGHT DECREASED [None]
